FAERS Safety Report 21905550 (Version 1)
Quarter: 2023Q1

REPORT INFORMATION
  Report Type: Spontaneous
  Country: US (occurrence: None)
  Receive Date: 20230124
  Receipt Date: 20230124
  Transmission Date: 20230418
  Serious: No
  Sender: FDA-Public Use
  Company Number: None

PATIENT
  Sex: 0

DRUGS (1)
  1. OCREVUS [Suspect]
     Active Substance: OCRELIZUMAB

REACTIONS (5)
  - Infusion related reaction [None]
  - Throat tightness [None]
  - Ear discomfort [None]
  - Limb discomfort [None]
  - Arthralgia [None]
